FAERS Safety Report 14795037 (Version 1)
Quarter: 2018Q2

REPORT INFORMATION
  Report Type: Spontaneous
  Country: CN (occurrence: CN)
  Receive Date: 20180423
  Receipt Date: 20180423
  Transmission Date: 20180711
  Serious: Yes (Hospitalization, Other)
  Sender: FDA-Public Use
  Company Number: CN-BAYER-2018-076847

PATIENT
  Age: 35 Year
  Sex: Male

DRUGS (2)
  1. IOPROMIDE 370 [Suspect]
     Active Substance: IOPROMIDE
     Dosage: UNK UNK, ONCE
  2. GADOTERATE MEGLUMINE [Suspect]
     Active Substance: GADOTERATE MEGLUMINE
     Dosage: UNK UNK, ONCE

REACTIONS (1)
  - Hyperbilirubinaemia [Recovered/Resolved]
